FAERS Safety Report 7047056-8 (Version None)
Quarter: 2010Q4

REPORT INFORMATION
  Report Type: 
  Country: None (occurrence: None)
  Receive Date: 20101015
  Receipt Date: 20101008
  Transmission Date: 20110411
  Serious: No
  Sender: FDA-Public Use
  Company Number: US-B.I. PHARMACEUTICALS,INC./RIDGEFIELD-2010-BP-11399BP

PATIENT
  Sex: Female

DRUGS (2)
  1. MICARDIS [Suspect]
  2. LOSARTAN [Suspect]

REACTIONS (5)
  - ADVERSE DRUG REACTION [None]
  - EYE DISORDER [None]
  - HYPERSENSITIVITY [None]
  - MULTIPLE ALLERGIES [None]
  - THROAT IRRITATION [None]
